FAERS Safety Report 9680415 (Version 1)
Quarter: 2013Q4

REPORT INFORMATION
  Report Type: Spontaneous
  Country: IN (occurrence: IN)
  Receive Date: 20131111
  Receipt Date: 20131111
  Transmission Date: 20140711
  Serious: Yes (Other)
  Sender: FDA-Public Use
  Company Number: IN-SUN PHARMACEUTICAL INDUSTRIES LTD-2013SUN04981

PATIENT
  Age: 48 Year
  Sex: Female

DRUGS (3)
  1. ANASTRAZOLE TABLETS 1MG [Suspect]
     Indication: BREAST CANCER
     Dosage: 1 MG, OD
     Route: 065
  2. TAMOXIFEN [Concomitant]
     Dosage: 20 MG, OD
  3. ZOLEDRONIC ACID [Concomitant]
     Dosage: 4 MG IN 100 ML SALINE

REACTIONS (1)
  - Tardive dyskinesia [Not Recovered/Not Resolved]
